FAERS Safety Report 23164144 (Version 1)
Quarter: 2023Q4

REPORT INFORMATION
  Report Type: Spontaneous
  Country: US (occurrence: None)
  Receive Date: 20231107
  Receipt Date: 20231107
  Transmission Date: 20240110
  Serious: No
  Sender: FDA-Public Use
  Company Number: None

PATIENT
  Sex: Female

DRUGS (1)
  1. HUMIRA [Suspect]
     Active Substance: ADALIMUMAB
     Indication: Rheumatoid arthritis
     Dosage: FREQUENCY : EVERY OTHER WEEK;?
     Route: 058
     Dates: start: 20231016

REACTIONS (7)
  - Nausea [None]
  - Vomiting [None]
  - Diarrhoea [None]
  - Dry mouth [None]
  - Nasal dryness [None]
  - Dry eye [None]
  - Drug ineffective [None]
